FAERS Safety Report 4419877-9 (Version None)
Quarter: 2004Q2

REPORT INFORMATION
  Report Type: 
  Country: None (occurrence: None)
  Receive Date: 20040622
  Receipt Date: 20031030
  Transmission Date: 20050107
  Serious: Yes (Hospitalization)
  Sender: FDA-Public Use
  Company Number: 350619

PATIENT
  Age: 82 Year
  Sex: Female

DRUGS (10)
  1. XELODA [Suspect]
     Dosage: 2 DOSE FORM 2 PER DAY ORAL
     Route: 048
     Dates: start: 20031015, end: 20031115
  2. ULTRAM [Concomitant]
  3. SYNTHROID [Concomitant]
  4. DEMADEX [Concomitant]
  5. LASIX [Concomitant]
  6. MEGACE (MEGESROL ACETATE) [Concomitant]
  7. FOSAMAX [Concomitant]
  8. ZOLOFT [Concomitant]
  9. FLEXERIL (CYCLOBENAZAPRINE HYDROCHLORIDE) [Concomitant]
  10. DURAGESIC [Concomitant]

REACTIONS (6)
  - ABDOMINAL PAIN [None]
  - DIARRHOEA [None]
  - NAUSEA [None]
  - PAIN IN EXTREMITY [None]
  - PYREXIA [None]
  - VOMITING [None]
